FAERS Safety Report 14017613 (Version 2)
Quarter: 2017Q4

REPORT INFORMATION
  Report Type: Report from Study
  Country: None (occurrence: FR)
  Receive Date: 20170927
  Receipt Date: 20171018
  Transmission Date: 20180321
  Serious: Yes (Other)
  Sender: FDA-Public Use
  Company Number: FR-ABBVIE-17P-056-2110775-00

PATIENT
  Age: 55 Year
  Sex: Female

DRUGS (1)
  1. VENCLYXTO [Suspect]
     Active Substance: VENETOCLAX
     Indication: CHRONIC LYMPHOCYTIC LEUKAEMIA
     Route: 048
     Dates: start: 201707, end: 20170903

REACTIONS (4)
  - White blood cell count increased [Unknown]
  - Gastrointestinal disorder [Unknown]
  - Off label use [Unknown]
  - Disease progression [Unknown]
